FAERS Safety Report 7940687-X (Version None)
Quarter: 2011Q4

REPORT INFORMATION
  Report Type: 
  Country: None (occurrence: None)
  Receive Date: 20111128
  Receipt Date: 20111117
  Transmission Date: 20120403
  Serious: No
  Sender: FDA-Public Use
  Company Number: US-JNJFOC-20111108413

PATIENT
  Sex: Female
  Weight: 54.43 kg

DRUGS (10)
  1. FENTANYL-100 [Suspect]
     Route: 065
     Dates: start: 20111116
  2. LEVOTHYROXINE SODIUM [Concomitant]
     Dosage: FOR 2 DAYS EACH WEEK
     Route: 048
  3. CLONAZEPAM [Concomitant]
     Indication: SLEEP DISORDER
     Route: 048
  4. DIOVAN [Concomitant]
     Indication: HYPERTENSION
     Route: 048
  5. AMLODIPINE [Concomitant]
     Indication: HYPERTENSION
     Route: 048
  6. ELAVIL [Concomitant]
     Indication: PRODUCT USED FOR UNKNOWN INDICATION
     Route: 048
  7. FENTANYL-100 [Suspect]
     Indication: ARTHRITIS
     Route: 065
     Dates: start: 20111108, end: 20111116
  8. NEXIUM [Concomitant]
     Indication: BARRETT'S OESOPHAGUS
     Route: 048
  9. LEVOTHYROXINE SODIUM [Concomitant]
     Indication: HYPOTHYROIDISM
     Dosage: FOR 5 DAYS EACH WEEK
     Route: 048
  10. BYSTOLIC [Concomitant]
     Indication: HYPERTENSION
     Route: 048
     Dates: start: 20100101

REACTIONS (2)
  - HEAT THERAPY [None]
  - WRONG TECHNIQUE IN DRUG USAGE PROCESS [None]
